FAERS Safety Report 9691908 (Version 2)
Quarter: 2013Q4

REPORT INFORMATION
  Report Type: Spontaneous
  Country: US (occurrence: US)
  Receive Date: 20131117
  Receipt Date: 20131129
  Transmission Date: 20140711
  Serious: Yes (Death)
  Sender: FDA-Public Use
  Company Number: US-ROCHE-1303252

PATIENT
  Sex: Female

DRUGS (12)
  1. XELODA [Suspect]
     Indication: BREAST CANCER FEMALE
     Dosage: 4 TABLETS TWICE DAILY, 2 WEEKS ON AND 1 WEEK OFF
     Route: 048
     Dates: start: 20131024
  2. MORPHINE [Concomitant]
  3. SENNA [Concomitant]
  4. NEURONTIN (UNITED STATES) [Concomitant]
  5. SYNTHROID [Concomitant]
  6. DEXAMETHASONE [Concomitant]
  7. COMPAZINE [Concomitant]
  8. RITALIN [Concomitant]
  9. VENTOLIN [Concomitant]
  10. MIRALAX [Concomitant]
  11. TRAMADOL [Concomitant]
  12. WELLBUTRIN [Concomitant]

REACTIONS (1)
  - Metastasis [Fatal]
